FAERS Safety Report 5808744-1 (Version None)
Quarter: 2008Q3

REPORT INFORMATION
  Report Type: 
  Country: None (occurrence: None)
  Receive Date: 20080714
  Receipt Date: 20080709
  Transmission Date: 20090109
  Serious: Yes (Life-Threatening, Hospitalization, Disabling)
  Sender: FDA-Public Use
  Company Number: AT-BRISTOL-MYERS SQUIBB COMPANY-14241988

PATIENT
  Age: 68 Year
  Sex: Female

DRUGS (9)
  1. IXABEPILONE [Suspect]
     Indication: BREAST CANCER METASTATIC
     Dosage: TOTAL DOSE PER CYCLE: 40MG/M2. FIRST DOSE ON: 27MAY08
     Route: 042
     Dates: start: 20080603, end: 20080603
  2. PANTOPRAZOLE SODIUM [Concomitant]
     Dosage: 40MG(1-0-0).
  3. SELOKEN [Concomitant]
     Dosage: 47.5MG(1/2-0-0).
  4. ENALAPRIL MALEATE AND HYDROCHLOROTHIAZIDE [Concomitant]
     Dosage: 1-0-0.
  5. PREDNISOLONE [Concomitant]
     Dosage: 25MG (1-0-0).
  6. TRESLEEN [Concomitant]
     Dosage: 50MG(1-0-0).
  7. ACETYLCYSTEINE [Concomitant]
     Dosage: MUCOBENE (ACETYLCYSTEIN) 600MG (1-0-0).
  8. SERETIDE [Concomitant]
     Dosage: SERETIDE DISKUS HB; 1 DOSAGE FORM= 2-0-2.
  9. VENDAL [Concomitant]
     Dosage: VENDAL RET. 10MG (1-0-0).

REACTIONS (4)
  - FATIGUE [None]
  - NEUTROPENIA [None]
  - STOMATITIS [None]
  - THROMBOCYTOPENIA [None]
